FAERS Safety Report 9888939 (Version 1)
Quarter: 2014Q1

REPORT INFORMATION
  Report Type: Spontaneous
  Country: US (occurrence: None)
  Receive Date: 20140207
  Receipt Date: 20140207
  Transmission Date: 20141002
  Serious: Yes (Hospitalization, Other)
  Sender: FDA-Public Use
  Company Number: SYM-2014-16140

PATIENT
  Age: 20 Year
  Sex: Male
  Weight: 117.94 kg

DRUGS (3)
  1. XENAZINE (12.5 MILLIGRAM, TABLET) (TETRABENAZINE) [Suspect]
     Indication: TOURETTE^S DISORDER
     Dosage: 12.5 MG, 3 IN 1 D, ORAL
     Route: 048
     Dates: start: 2013, end: 201401
  2. XENAZINE (12.5 MILLIGRAM, TABLET) (TETRABENAZINE) [Suspect]
     Indication: OFF LABEL USE
     Dosage: 12.5 MG, 3 IN 1 D, ORAL
     Route: 048
     Dates: start: 2013, end: 201401
  3. CITALOPRAM (CITALOPRAM) (CITALOPRAM) [Concomitant]

REACTIONS (1)
  - Suicidal ideation [None]
